FAERS Safety Report 13302700 (Version 5)
Quarter: 2025Q3

REPORT INFORMATION
  Report Type: Spontaneous
  Country: EU (occurrence: EU)
  Receive Date: 20170307
  Receipt Date: 20250724
  Transmission Date: 20251020
  Serious: Yes (Death, Other)
  Sender: NOVARTIS
  Company Number: PHHY2017FR034961

PATIENT
  Age: 3 Year
  Sex: Male

DRUGS (21)
  1. CYCLOSPORINE [Suspect]
     Active Substance: CYCLOSPORINE
     Indication: Immunosuppressant drug therapy
     Route: 065
  2. CYCLOSPORINE [Suspect]
     Active Substance: CYCLOSPORINE
     Indication: Immunosuppression
  3. CYCLOSPORINE [Suspect]
     Active Substance: CYCLOSPORINE
     Indication: Post transplant lymphoproliferative disorder
  4. CYCLOSPORINE [Suspect]
     Active Substance: CYCLOSPORINE
     Indication: Allogenic stem cell transplantation
  5. FLUDARABINE [Suspect]
     Active Substance: FLUDARABINE PHOSPHATE
     Indication: Immunosuppression
     Route: 065
  6. FLUDARABINE [Suspect]
     Active Substance: FLUDARABINE PHOSPHATE
     Indication: Immunosuppressant drug therapy
  7. FLUDARABINE [Suspect]
     Active Substance: FLUDARABINE PHOSPHATE
     Indication: Post transplant lymphoproliferative disorder
  8. FLUDARABINE [Suspect]
     Active Substance: FLUDARABINE PHOSPHATE
     Indication: Allogenic stem cell transplantation
  9. BUSULFAN [Suspect]
     Active Substance: BUSULFAN
     Indication: Immunosuppression
     Route: 065
  10. BUSULFAN [Suspect]
     Active Substance: BUSULFAN
     Indication: Immunosuppressant drug therapy
  11. BUSULFAN [Suspect]
     Active Substance: BUSULFAN
     Indication: Post transplant lymphoproliferative disorder
  12. BUSULFAN [Suspect]
     Active Substance: BUSULFAN
     Indication: Allogenic stem cell transplantation
  13. THIOTEPA [Suspect]
     Active Substance: THIOTEPA
     Indication: Immunosuppression
     Route: 065
  14. THIOTEPA [Suspect]
     Active Substance: THIOTEPA
     Indication: Immunosuppressant drug therapy
  15. THIOTEPA [Suspect]
     Active Substance: THIOTEPA
     Indication: Post transplant lymphoproliferative disorder
  16. THIOTEPA [Suspect]
     Active Substance: THIOTEPA
     Indication: Allogenic stem cell transplantation
  17. ETOPOSIDE [Suspect]
     Active Substance: ETOPOSIDE
     Indication: Immunosuppression
     Route: 065
  18. ETOPOSIDE [Suspect]
     Active Substance: ETOPOSIDE
     Indication: Immunosuppressant drug therapy
  19. ETOPOSIDE [Suspect]
     Active Substance: ETOPOSIDE
     Indication: Post transplant lymphoproliferative disorder
  20. ETOPOSIDE [Suspect]
     Active Substance: ETOPOSIDE
     Indication: Allogenic stem cell transplantation
     Route: 065
  21. ETOPOSIDE [Suspect]
     Active Substance: ETOPOSIDE
     Indication: Post transplant lymphoproliferative disorder

REACTIONS (6)
  - Post transplant lymphoproliferative disorder [Fatal]
  - Disease recurrence [Fatal]
  - Plasma cell myeloma [Fatal]
  - Epstein-Barr virus infection [Fatal]
  - Product use in unapproved indication [Unknown]
  - Product use issue [Unknown]
